FAERS Safety Report 11131227 (Version 1)
Quarter: 2015Q2

REPORT INFORMATION
  Report Type: Spontaneous
  Country: RU (occurrence: None)
  Receive Date: 20150520
  Receipt Date: 20150520
  Transmission Date: 20150821
  Serious: Yes (Hospitalization)
  Sender: FDA-Public Use
  Company Number: FK201502289

PATIENT
  Sex: Female

DRUGS (1)
  1. FUROSEMIDE (MANUFACTURER UNKNOWN) (FUROSEMIDE) (FUROSEMIDE) [Suspect]
     Active Substance: FUROSEMIDE
     Indication: SELF-MEDICATION
     Dosage: 2-3  TIMES PER WEEK, UNKNOWN

REACTIONS (19)
  - Product use issue [None]
  - Gastroenteritis [None]
  - Intentional product misuse [None]
  - Hyponatraemia [None]
  - Hypokalaemia [None]
  - Metabolic acidosis [None]
  - Anuria [None]
  - Polyuria [None]
  - Self-medication [None]
  - Diarrhoea [None]
  - Hypotension [None]
  - Acute kidney injury [None]
  - Dizziness [None]
  - Electrolyte imbalance [None]
  - Tubulointerstitial nephritis [None]
  - Vomiting [None]
  - Asthenia [None]
  - Dehydration [None]
  - Autoimmune thyroiditis [None]
